FAERS Safety Report 12651214 (Version 1)
Quarter: 2016Q3

REPORT INFORMATION
  Report Type: Report from Study
  Country: US (occurrence: US)
  Receive Date: 20160815
  Receipt Date: 20160815
  Transmission Date: 20161109
  Serious: No
  Sender: FDA-Public Use
  Company Number: US-AMGEN-USASL2016102318

PATIENT
  Age: 50 Year
  Sex: Female

DRUGS (1)
  1. ENBREL [Suspect]
     Active Substance: ETANERCEPT
     Indication: RHEUMATOID ARTHRITIS
     Dosage: UNK UNK, QWK
     Route: 065
     Dates: start: 2008

REACTIONS (9)
  - Pain [Unknown]
  - Eye inflammation [Unknown]
  - Back pain [Unknown]
  - Paraesthesia [Unknown]
  - Cystitis [Not Recovered/Not Resolved]
  - Headache [Unknown]
  - Limb discomfort [Unknown]
  - Vision blurred [Unknown]
  - Pain in extremity [Unknown]

NARRATIVE: CASE EVENT DATE: 201607
